FAERS Safety Report 16971263 (Version 13)
Quarter: 2024Q2

REPORT INFORMATION
  Report Type: Spontaneous
  Country: CA (occurrence: CA)
  Receive Date: 20191029
  Receipt Date: 20240626
  Transmission Date: 20240715
  Serious: Yes (Other)
  Sender: FDA-Public Use
  Company Number: CA-BAUSCH-BL-2019-059127

PATIENT
  Age: 34 Year
  Sex: Female
  Weight: 81 kg

DRUGS (61)
  1. WELLBUTRIN XL [Suspect]
     Active Substance: BUPROPION HYDROCHLORIDE
     Indication: Product used for unknown indication
     Dosage: EXTENDED RELEASE TABLET
     Route: 065
  2. WELLBUTRIN XL [Suspect]
     Active Substance: BUPROPION HYDROCHLORIDE
     Route: 065
  3. WELLBUTRIN XL [Suspect]
     Active Substance: BUPROPION HYDROCHLORIDE
     Dosage: EXTENDED/PROLONGED RELEASE TABLET
     Route: 048
  4. WELLBUTRIN XL [Suspect]
     Active Substance: BUPROPION HYDROCHLORIDE
     Dosage: EXTENDED/PROLONGED RELEASE TABLET
     Route: 065
  5. WELLBUTRIN XL [Suspect]
     Active Substance: BUPROPION HYDROCHLORIDE
     Dosage: EXTENDED/PROLONGED RELEASE TABLET
     Route: 065
  6. BUPROPION [Suspect]
     Active Substance: BUPROPION
     Indication: Product used for unknown indication
     Route: 065
  7. BUPROPION [Suspect]
     Active Substance: BUPROPION
     Route: 048
  8. BUPROPION [Suspect]
     Active Substance: BUPROPION
     Route: 065
  9. BUPROPION [Suspect]
     Active Substance: BUPROPION
     Route: 065
  10. BUPROPION [Suspect]
     Active Substance: BUPROPION
     Route: 065
  11. BUPROPION [Suspect]
     Active Substance: BUPROPION
     Route: 065
  12. BUPROPION [Suspect]
     Active Substance: BUPROPION
     Route: 065
  13. BUPROPION [Suspect]
     Active Substance: BUPROPION
     Route: 065
  14. BUPROPION [Suspect]
     Active Substance: BUPROPION
     Route: 048
  15. BUPROPION [Suspect]
     Active Substance: BUPROPION
     Route: 065
  16. AKNE-MYCIN [Suspect]
     Active Substance: ERYTHROMYCIN
     Indication: Product used for unknown indication
     Route: 065
  17. TRETINOIN [Suspect]
     Active Substance: TRETINOIN
     Indication: Acne
     Route: 061
  18. TRETINOIN [Suspect]
     Active Substance: TRETINOIN
     Route: 061
  19. ERYTHROMYCIN [Suspect]
     Active Substance: ERYTHROMYCIN
     Indication: Acne
     Route: 065
  20. ERYTHROMYCIN [Suspect]
     Active Substance: ERYTHROMYCIN
     Route: 065
  21. BENZOYL PEROXIDE\CLINDAMYCIN [Suspect]
     Active Substance: BENZOYL PEROXIDE\CLINDAMYCIN
     Indication: Product used for unknown indication
     Route: 061
  22. BENZOYL PEROXIDE\CLINDAMYCIN [Suspect]
     Active Substance: BENZOYL PEROXIDE\CLINDAMYCIN
     Route: 061
  23. BENZOYL PEROXIDE\CLINDAMYCIN [Suspect]
     Active Substance: BENZOYL PEROXIDE\CLINDAMYCIN
     Route: 061
  24. ERYTHROMYCIN [Suspect]
     Active Substance: ERYTHROMYCIN
     Indication: Acne
     Route: 061
  25. ERYTHROMYCIN [Suspect]
     Active Substance: ERYTHROMYCIN
     Route: 061
  26. CYMBALTA [Suspect]
     Active Substance: DULOXETINE HYDROCHLORIDE
     Indication: Product used for unknown indication
     Route: 065
  27. CYMBALTA [Suspect]
     Active Substance: DULOXETINE HYDROCHLORIDE
     Dosage: CAPSULE, DELAYED RELEASE
     Route: 048
  28. CYMBALTA [Suspect]
     Active Substance: DULOXETINE HYDROCHLORIDE
     Route: 065
  29. CYMBALTA [Suspect]
     Active Substance: DULOXETINE HYDROCHLORIDE
     Dosage: CAPSULE, DELAYED RELEASE
     Route: 065
  30. CYMBALTA [Suspect]
     Active Substance: DULOXETINE HYDROCHLORIDE
     Dosage: CAPSULE, DELAYED RELEASE
     Route: 065
  31. CYMBALTA [Suspect]
     Active Substance: DULOXETINE HYDROCHLORIDE
     Dosage: CAPSULE, DELAYED RELEASE
     Route: 048
  32. ERYTHROMYCIN\TRETINOIN [Suspect]
     Active Substance: ERYTHROMYCIN\TRETINOIN
     Indication: Acne
     Route: 061
  33. ERYTHROMYCIN\TRETINOIN [Suspect]
     Active Substance: ERYTHROMYCIN\TRETINOIN
     Route: 065
  34. QUETIAPINE [Suspect]
     Active Substance: QUETIAPINE
     Indication: Product used for unknown indication
     Route: 048
  35. QUETIAPINE [Suspect]
     Active Substance: QUETIAPINE
     Route: 048
  36. QUETIAPINE [Suspect]
     Active Substance: QUETIAPINE
     Route: 065
  37. QUETIAPINE [Suspect]
     Active Substance: QUETIAPINE
     Route: 048
  38. QUETIAPINE [Suspect]
     Active Substance: QUETIAPINE
     Route: 048
  39. QUETIAPINE [Suspect]
     Active Substance: QUETIAPINE
     Route: 048
  40. QUETIAPINE [Suspect]
     Active Substance: QUETIAPINE
     Route: 048
  41. QUETIAPINE [Suspect]
     Active Substance: QUETIAPINE
     Dosage: QUETIAPINE FUMARATE
     Route: 048
  42. ERYTHROMYCIN [Suspect]
     Active Substance: ERYTHROMYCIN
     Indication: Acne
     Dosage: ERYTHROMYCIN PROPIONATE
     Route: 065
  43. ERYTHROMYCIN [Suspect]
     Active Substance: ERYTHROMYCIN
     Dosage: ERYTHROMYCIN PROPIONATE
     Route: 065
  44. ERYTHROMYCIN [Suspect]
     Active Substance: ERYTHROMYCIN
     Dosage: ERYTHROMYCIN
     Route: 061
  45. DULOXETINE [Suspect]
     Active Substance: DULOXETINE
     Indication: Product used for unknown indication
     Route: 048
  46. DULOXETINE [Suspect]
     Active Substance: DULOXETINE
     Route: 048
  47. DULOXETINE [Suspect]
     Active Substance: DULOXETINE
     Dosage: CAPSULE, DELAYED RELEASE
     Route: 065
  48. DULOXETINE [Suspect]
     Active Substance: DULOXETINE
     Dosage: NOT SPECIFIED
     Route: 065
  49. DULOXETINE [Suspect]
     Active Substance: DULOXETINE
     Dosage: NOT SPECIFIED
     Route: 048
  50. DULOXETINE [Suspect]
     Active Substance: DULOXETINE
     Dosage: NOT SPECIFIED
     Route: 065
  51. DULOXETINE [Suspect]
     Active Substance: DULOXETINE
     Indication: Product used for unknown indication
     Route: 065
  52. DULOXETINE [Suspect]
     Active Substance: DULOXETINE
     Dosage: DULOXETINE HYDROCHLORIDE
     Route: 065
  53. DULOXETINE [Suspect]
     Active Substance: DULOXETINE
     Dosage: DULOXETINE HYDROCHLORIDE
     Route: 065
  54. DULOXETINE [Suspect]
     Active Substance: DULOXETINE
     Dosage: DULOXETINE HYDROCHLORIDE
     Route: 065
  55. DULOXETINE [Suspect]
     Active Substance: DULOXETINE
     Dosage: DULOXETINE HYDROCHLORIDE
     Route: 065
  56. BENZOYL PEROXIDE\CLINDAMYCIN [Suspect]
     Active Substance: BENZOYL PEROXIDE\CLINDAMYCIN
     Indication: Product used for unknown indication
     Route: 065
  57. BENZOYL PEROXIDE\CLINDAMYCIN [Suspect]
     Active Substance: BENZOYL PEROXIDE\CLINDAMYCIN
     Route: 062
  58. BENZOYL PEROXIDE\CLINDAMYCIN [Suspect]
     Active Substance: BENZOYL PEROXIDE\CLINDAMYCIN
     Route: 061
  59. BUPROPION HYDROBROMIDE [Suspect]
     Active Substance: BUPROPION HYDROBROMIDE
     Indication: Product used for unknown indication
     Route: 061
  60. BUPROPION HYDROBROMIDE [Suspect]
     Active Substance: BUPROPION HYDROBROMIDE
     Route: 061
  61. BUPROPION HYDROBROMIDE [Suspect]
     Active Substance: BUPROPION HYDROBROMIDE
     Route: 061

REACTIONS (2)
  - Abortion spontaneous [Unknown]
  - Maternal exposure during pregnancy [Unknown]
